FAERS Safety Report 25266549 (Version 1)
Quarter: 2025Q2

REPORT INFORMATION
  Report Type: Spontaneous
  Country: AU (occurrence: AU)
  Receive Date: 20250505
  Receipt Date: 20250505
  Transmission Date: 20250717
  Serious: Yes (Hospitalization, Other)
  Sender: SANDOZ
  Company Number: AU-SANDOZ-SDZ2025AU027928

PATIENT
  Age: 57 Year
  Sex: Female

DRUGS (1)
  1. NATALIZUMAB [Suspect]
     Active Substance: NATALIZUMAB
     Indication: Relapsing-remitting multiple sclerosis
     Dosage: UNK UNK, QMO
     Route: 065

REACTIONS (2)
  - Pneumonitis [Recovered/Resolved]
  - Eosinophilia [Recovered/Resolved]
